FAERS Safety Report 10357444 (Version 1)
Quarter: 2014Q3

REPORT INFORMATION
  Report Type: Spontaneous
  Country: US (occurrence: None)
  Receive Date: 20140730
  Receipt Date: 20140730
  Transmission Date: 20150326
  Serious: Yes (Other)
  Sender: FDA-Public Use
  Company Number: 001774677A

PATIENT
  Age: 31 Year
  Sex: Female

DRUGS (6)
  1. PROACTIV PLUS COMPLEXION PERFECTING HYDRATOR [Suspect]
     Active Substance: SALICYLIC ACID
     Indication: ACNE
     Dosage: DERMAL
     Dates: start: 20140215, end: 20140617
  2. ORTHO-TRI-CYCLEN LO [Concomitant]
  3. PROACTIV PLUS PORE TARGETING TREATMENT [Suspect]
     Active Substance: BENZOYL PEROXIDE
     Indication: ACNE
     Dosage: DERMAL
     Dates: start: 20140214, end: 20140617
  4. PROACTIVPLUS SKIN SMOOTHING EXFOLIATOR [Suspect]
     Active Substance: BENZOYL PEROXIDE
     Indication: ACNE
     Dosage: DERMAL
     Dates: start: 20140214, end: 20140217
  5. IRON [Concomitant]
     Active Substance: IRON
  6. ZYRTEC [Concomitant]
     Active Substance: CETIRIZINE HYDROCHLORIDE

REACTIONS (6)
  - Urticaria [None]
  - Hypersensitivity [None]
  - Dyspnoea [None]
  - Rash [None]
  - Swelling face [None]
  - Lip swelling [None]

NARRATIVE: CASE EVENT DATE: 20140219
